FAERS Safety Report 7647594-0 (Version None)
Quarter: 2011Q3

REPORT INFORMATION
  Report Type: 
  Country: None (occurrence: None)
  Receive Date: 20110801
  Receipt Date: 20110719
  Transmission Date: 20111222
  Serious: Yes (Hospitalization, Other)
  Sender: FDA-Public Use
  Company Number: US-AMGEN-USASP2011036581

PATIENT
  Age: 55 Year
  Sex: Female

DRUGS (1)
  1. ENBREL [Suspect]
     Indication: RHEUMATOID ARTHRITIS
     Dosage: 50 MG, QWK
     Dates: start: 19990801

REACTIONS (8)
  - RHEUMATOID ARTHRITIS [None]
  - INJECTION SITE SWELLING [None]
  - DEHYDRATION [None]
  - ANAL CANCER [None]
  - PAIN [None]
  - GAIT DISTURBANCE [None]
  - INJECTION SITE PRURITUS [None]
  - PANIC REACTION [None]
